FAERS Safety Report 12682647 (Version 1)
Quarter: 2016Q3

REPORT INFORMATION
  Report Type: Other
  Country: KR (occurrence: KR)
  Receive Date: 20160825
  Receipt Date: 20160825
  Transmission Date: 20161109
  Serious: No
  Sender: FDA-Public Use
  Company Number: KR-NOVEL LABORATORIES, INC-2016-03565

PATIENT
  Age: 75 Year
  Sex: Female

DRUGS (2)
  1. METOCLOPRAMIDE. [Suspect]
     Active Substance: METOCLOPRAMIDE
     Indication: COGNITIVE DISORDER
     Dosage: 11.52 MG
     Route: 065
  2. LEVOSULPIRIDE [Suspect]
     Active Substance: LEVOSULPIRIDE
     Indication: COGNITIVE DISORDER
     Dosage: 50 MG
     Route: 065

REACTIONS (1)
  - Parkinsonism [Unknown]
